FAERS Safety Report 21842303 (Version 1)
Quarter: 2023Q1

REPORT INFORMATION
  Report Type: Spontaneous
  Country: US (occurrence: None)
  Receive Date: 20230109
  Receipt Date: 20230109
  Transmission Date: 20230418
  Serious: Yes (Hospitalization)
  Sender: FDA-Public Use
  Company Number: None

PATIENT
  Sex: Male

DRUGS (2)
  1. ABIRATERONE [Suspect]
     Active Substance: ABIRATERONE
     Dosage: 1000MG DAILY ORAL
  2. METOPROLOL [Suspect]
     Active Substance: METOPROLOL

REACTIONS (4)
  - Hypotension [None]
  - Blood potassium decreased [None]
  - Atrial fibrillation [None]
  - Drug interaction [None]
